FAERS Safety Report 18682498 (Version 1)
Quarter: 2020Q4

REPORT INFORMATION
  Report Type: Spontaneous
  Country: US (occurrence: US)
  Receive Date: 20201229
  Receipt Date: 20201229
  Transmission Date: 20210114
  Serious: No
  Sender: FDA-Public Use
  Company Number: US-LUPIN PHARMACEUTICALS INC.-2020-06557

PATIENT
  Age: 73 Year
  Sex: Male
  Weight: 90.7 kg

DRUGS (1)
  1. IRBESARTAN TABLETS USP 300 MG [Suspect]
     Active Substance: IRBESARTAN
     Indication: HYPERTENSION
     Dosage: 300 MILLIGRAM, QD
     Route: 048
     Dates: start: 20200907, end: 20200917

REACTIONS (5)
  - Product taste abnormal [Unknown]
  - No adverse event [Unknown]
  - Product quality issue [Unknown]
  - Poor quality product administered [Unknown]
  - Product coating issue [Unknown]

NARRATIVE: CASE EVENT DATE: 20200907
